FAERS Safety Report 10379526 (Version 1)
Quarter: 2014Q3

REPORT INFORMATION
  Report Type: Report from Study
  Country: US (occurrence: US)
  Receive Date: 20140812
  Receipt Date: 20140812
  Transmission Date: 20150326
  Serious: No
  Sender: FDA-Public Use
  Company Number: US-ALEXION-A201305530

PATIENT

DRUGS (1)
  1. SOLIRIS [Suspect]
     Active Substance: ECULIZUMAB
     Indication: HAEMOLYTIC URAEMIC SYNDROME
     Dosage: UNK
     Route: 042

REACTIONS (13)
  - Sleep disorder [Unknown]
  - Neuropathy peripheral [Unknown]
  - Memory impairment [Unknown]
  - Fatigue [Unknown]
  - Vomiting [Unknown]
  - Nausea [Unknown]
  - Gastrointestinal infection [Unknown]
  - Malaise [Unknown]
  - Pain [Unknown]
  - Drug tolerance increased [Unknown]
  - Asthenia [Unknown]
  - Tooth infection [Unknown]
  - Dyspnoea [Unknown]
